FAERS Safety Report 8492948 (Version 5)
Quarter: 2012Q4

REPORT INFORMATION
  Report Type: Report from Study
  Country: FR (occurrence: FR)
  Receive Date: 20120404
  Receipt Date: 20121005
  Transmission Date: 20130627
  Serious: Yes (Other)
  Sender: FDA-Public Use
  Company Number: FR-CELGENEUS-056-C5013-12032564

PATIENT
  Age: 75 Year
  Sex: Male

DRUGS (13)
  1. CC-5013 [Suspect]
     Indication: MULTIPLE MYELOMA
     Dosage: 25 Milligram
     Route: 048
     Dates: start: 20081210
  2. CC-5013 [Suspect]
     Dosage: 25 Milligram
     Route: 048
     Dates: start: 20120301
  3. CC-5013 [Suspect]
     Dosage: 25 Milligram
     Route: 048
     Dates: start: 20120403
  4. DEXAMETHASONE [Suspect]
     Indication: MULTIPLE MYELOMA
     Route: 065
     Dates: start: 20081210, end: 20100106
  5. RENITEC [Concomitant]
     Indication: HYPERTENSION ARTERIAL
     Dosage: 20 Milligram
     Route: 048
     Dates: start: 1986
  6. PARACETAMOL [Concomitant]
     Indication: BONE PAIN
     Route: 048
     Dates: start: 2008
  7. ORACILLIN [Concomitant]
     Indication: INFECTION PROPHYLAXIS
     Dosage: MIU
     Route: 048
     Dates: start: 20080106
  8. PREVISCAN [Concomitant]
     Indication: THROMBOSIS PROPHYLAXIS
     Dosage: 10 Milligram
     Route: 048
     Dates: start: 20090306
  9. OMEPRAZOLE [Concomitant]
     Indication: METAPLASIA
     Dosage: 40 Milligram
     Route: 048
     Dates: start: 20100731
  10. IXPRIM [Concomitant]
     Indication: BONE PAIN
     Dosage: 1 Tablet
     Route: 048
     Dates: start: 20110201
  11. ZOPICLONE [Concomitant]
     Indication: INSOMNIA
     Dosage: 7.5 Milligram
     Route: 048
     Dates: start: 20120202
  12. ENALAPRIL [Concomitant]
     Indication: HYPERTENSION ARTERIAL
     Route: 048
     Dates: start: 20120202
  13. MOVICOL [Concomitant]
     Indication: CONSTIPATION PROPHYLAXIS
     Route: 048
     Dates: start: 20120202

REACTIONS (1)
  - Basal cell carcinoma [Recovered/Resolved]
